FAERS Safety Report 14351844 (Version 2)
Quarter: 2018Q1

REPORT INFORMATION
  Report Type: Spontaneous
  Country: CA (occurrence: CA)
  Receive Date: 20180104
  Receipt Date: 20180112
  Transmission Date: 20180509
  Serious: Yes (Other)
  Sender: FDA-Public Use
  Company Number: CA-BAYER-2017-251796

PATIENT
  Sex: Female

DRUGS (2)
  1. NAPROXEN SODIUM ({= 220 MG) [Suspect]
     Active Substance: NAPROXEN SODIUM
     Indication: FIBROMYALGIA
     Dosage: 1 DF, BID
     Dates: start: 2007, end: 2017
  2. NAPROXEN SODIUM ({= 220 MG) [Suspect]
     Active Substance: NAPROXEN SODIUM
     Indication: FATIGUE

REACTIONS (1)
  - Renal failure [None]

NARRATIVE: CASE EVENT DATE: 20171229
